FAERS Safety Report 6095091-9 (Version None)
Quarter: 2009Q1

REPORT INFORMATION
  Report Type: 
  Country: None (occurrence: None)
  Receive Date: 20090227
  Receipt Date: 20080214
  Transmission Date: 20090719
  Serious: No
  Sender: FDA-Public Use
  Company Number: A0703651A

PATIENT
  Age: 38 Year
  Sex: Male

DRUGS (2)
  1. LAMICTAL [Suspect]
     Dosage: 100MG TWICE PER DAY
     Route: 048
     Dates: start: 20030101
  2. NO CONCURRENT MEDICATION [Concomitant]

REACTIONS (3)
  - INFLUENZA LIKE ILLNESS [None]
  - PALPITATIONS [None]
  - PRODUCT QUALITY ISSUE [None]
